FAERS Safety Report 8926298 (Version 2)
Quarter: 2012Q4

REPORT INFORMATION
  Report Type: Report from Study
  Country: US (occurrence: US)
  Receive Date: 20121127
  Receipt Date: 20121224
  Transmission Date: 20130627
  Serious: Yes (Death)
  Sender: FDA-Public Use
  Company Number: US-ROCHE-1157456

PATIENT
  Sex: Female

DRUGS (1)
  1. CAPECITABINE [Suspect]
     Indication: BREAST CANCER
     Route: 048

REACTIONS (1)
  - Breast cancer metastatic [Fatal]
